FAERS Safety Report 13761831 (Version 1)
Quarter: 2017Q3

REPORT INFORMATION
  Report Type: Spontaneous
  Country: US (occurrence: US)
  Receive Date: 20170718
  Receipt Date: 20170718
  Transmission Date: 20171127
  Serious: No
  Sender: FDA-Public Use
  Company Number: US-TEVA-771952USA

PATIENT
  Sex: Male

DRUGS (2)
  1. AUSTEDO [Suspect]
     Active Substance: DEUTETRABENAZINE
     Indication: CHOREA
     Dosage: 48 MILLIGRAM DAILY;
     Route: 065
     Dates: start: 2017
  2. AUSTEDO [Suspect]
     Active Substance: DEUTETRABENAZINE
     Dosage: 36 MILLIGRAM DAILY;
     Route: 065
     Dates: start: 2017

REACTIONS (2)
  - Product use in unapproved indication [Unknown]
  - Hyperhidrosis [Recovered/Resolved]

NARRATIVE: CASE EVENT DATE: 2017
